FAERS Safety Report 7951083-3 (Version None)
Quarter: 2011Q4

REPORT INFORMATION
  Report Type: 
  Country: None (occurrence: None)
  Receive Date: 20111201
  Receipt Date: 20111121
  Transmission Date: 20120403
  Serious: Yes (Other)
  Sender: FDA-Public Use
  Company Number: GB-US-EMD SERONO, INC.-7097401

PATIENT
  Sex: Female

DRUGS (1)
  1. SAIZEN [Suspect]
     Indication: TURNER'S SYNDROME
     Route: 058
     Dates: start: 20111014

REACTIONS (1)
  - SUICIDAL IDEATION [None]
